FAERS Safety Report 21978024 (Version 1)
Quarter: 2023Q1

REPORT INFORMATION
  Report Type: Spontaneous
  Country: FR (occurrence: FR)
  Receive Date: 20230210
  Receipt Date: 20230210
  Transmission Date: 20230417
  Serious: Yes (Other)
  Sender: FDA-Public Use
  Company Number: FR-FreseniusKabi-FK202301036

PATIENT
  Age: 75 Year
  Sex: Male
  Weight: 64 kg

DRUGS (1)
  1. LINEZOLID [Suspect]
     Active Substance: LINEZOLID
     Indication: Pneumonia
     Dosage: 600 MG
     Route: 058
     Dates: start: 20230117, end: 20230123

REACTIONS (7)
  - Off label use [Unknown]
  - Extravasation [Recovered/Resolved]
  - Haematoma [Recovered/Resolved]
  - Bullous haemorrhagic dermatosis [Recovered/Resolved]
  - Blister [Recovered/Resolved]
  - Oedema [Recovered/Resolved]
  - Burning sensation [Recovered/Resolved]

NARRATIVE: CASE EVENT DATE: 20230118
